FAERS Safety Report 11022935 (Version 2)
Quarter: 2015Q2

REPORT INFORMATION
  Report Type: Spontaneous
  Country: US (occurrence: US)
  Receive Date: 20150413
  Receipt Date: 20150413
  Transmission Date: 20150821
  Serious: Yes (Other)
  Sender: FDA-Public Use
  Company Number: US-ASTELLAS-2014US003896

PATIENT
  Age: 87 Year
  Sex: Female

DRUGS (4)
  1. AMLODIPINE [Concomitant]
     Active Substance: AMLODIPINE BESYLATE
     Indication: HYPERTENSION
     Dosage: UNK UNK, UNKNOWN FREQ.
     Route: 065
  2. PROTOPIC [Suspect]
     Active Substance: TACROLIMUS
     Indication: ECZEMA
     Dosage: 0.1 %, OTHER-TWICE DAILY FOR 2 WEEKS AND PRN FOR FLARES
     Route: 061
     Dates: start: 20131202, end: 20140114
  3. PROTOPIC [Suspect]
     Active Substance: TACROLIMUS
     Indication: ROSACEA
  4. ATACAND [Concomitant]
     Active Substance: CANDESARTAN CILEXETIL
     Indication: HYPERTENSION
     Dosage: UNK UNK, UNKNOWN FREQ.
     Route: 065

REACTIONS (3)
  - Application site pain [Unknown]
  - Off label use [Unknown]
  - Application site erythema [Unknown]
